FAERS Safety Report 8519202-8 (Version None)
Quarter: 2012Q3

REPORT INFORMATION
  Report Type: 
  Country: None (occurrence: None)
  Receive Date: 20120718
  Receipt Date: 20120710
  Transmission Date: 20120928
  Serious: Yes (Hospitalization, Other)
  Sender: FDA-Public Use
  Company Number: FR-ELI_LILLY_AND_COMPANY-FR201207002594

PATIENT
  Sex: Male

DRUGS (12)
  1. ASPIRIN [Concomitant]
     Dosage: UNK, UNKNOWN
     Route: 065
  2. CARBOPLATIN [Concomitant]
     Indication: BLADDER CANCER
     Dosage: UNK, UNKNOWN
     Route: 065
     Dates: start: 20120216
  3. DIAMICRON [Concomitant]
     Dosage: UNK, UNKNOWN
     Route: 065
  4. RAMIPRIL [Concomitant]
     Dosage: UNK, UNKNOWN
     Route: 065
  5. KYTRIL [Concomitant]
     Dosage: UNK, UNKNOWN
     Route: 065
  6. BISOPROLOL FUMARATE AND HYDROCHLOROTHIAZIDE [Concomitant]
     Dosage: UNK, UNKNOWN
     Route: 065
  7. INNOHEP [Concomitant]
     Dosage: UNK, UNKNOWN
     Route: 065
  8. ATORVASTATIN [Concomitant]
     Dosage: UNK, UNKNOWN
     Route: 065
  9. NEXIUM [Concomitant]
     Dosage: UNK, UNKNOWN
     Route: 065
  10. AMLODIPINE BESYLATE [Concomitant]
     Dosage: UNK, UNKNOWN
     Route: 065
  11. PREDNISONE [Concomitant]
     Dosage: UNK, UNKNOWN
     Route: 065
  12. GEMZAR [Suspect]
     Indication: BLADDER CANCER
     Dosage: UNK, UNKNOWN
     Route: 042
     Dates: start: 20120216

REACTIONS (4)
  - DRUG ERUPTION [None]
  - FEBRILE NEUTROPENIA [None]
  - MUCOSAL INFLAMMATION [None]
  - SKIN NECROSIS [None]
